FAERS Safety Report 15982476 (Version 2)
Quarter: 2019Q4

REPORT INFORMATION
  Report Type: Spontaneous
  Country: IT (occurrence: IT)
  Receive Date: 20190219
  Receipt Date: 20191014
  Transmission Date: 20200122
  Serious: Yes (Other)
  Sender: FDA-Public Use
  Company Number: IT-PFIZER INC-2019067936

PATIENT
  Age: 52 Year
  Sex: Male

DRUGS (3)
  1. ETOPOSIDE. [Suspect]
     Active Substance: ETOPOSIDE
     Indication: ACUTE MYELOID LEUKAEMIA
     Dosage: 180 MG, CYCLIC
     Route: 042
     Dates: start: 20181231, end: 20181231
  2. CARBOPLATIN. [Suspect]
     Active Substance: CARBOPLATIN
     Indication: ACUTE MYELOID LEUKAEMIA
     Dosage: 270 MG, CYCLIC
     Route: 041
     Dates: start: 20181231, end: 20181231
  3. CYTARABINE. [Suspect]
     Active Substance: CYTARABINE
     Indication: ACUTE MYELOID LEUKAEMIA
     Dosage: 900 MG, CYCLIC
     Route: 042
     Dates: start: 20181231, end: 20181231

REACTIONS (2)
  - Rhabdomyolysis [Unknown]
  - Venoocclusive disease [Unknown]

NARRATIVE: CASE EVENT DATE: 20190110
